FAERS Safety Report 15967793 (Version 1)
Quarter: 2019Q1

REPORT INFORMATION
  Report Type: Spontaneous
  Country: NL (occurrence: NL)
  Receive Date: 20190215
  Receipt Date: 20190215
  Transmission Date: 20190418
  Serious: Yes (Hospitalization, Other)
  Sender: FDA-Public Use
  Company Number: NL-MYLANLABS-2018M1093612

PATIENT
  Age: 34 Year
  Sex: Male
  Weight: 67 kg

DRUGS (2)
  1. TRAMADOL. [Interacting]
     Active Substance: TRAMADOL
     Indication: NEURALGIA
     Dosage: 50 MILLIGRAM, Q8H (3 PER DAG)
     Route: 048
     Dates: start: 20180807, end: 20180808
  2. AMITRIPTYLINE [Suspect]
     Active Substance: AMITRIPTYLINE
     Indication: PRODUCT USED FOR UNKNOWN INDICATION
     Dosage: 1 DOSAGE FORM, QD (EEN PER DAG, LICHTE DOSERING)
     Route: 065

REACTIONS (2)
  - Syncope [Recovered/Resolved]
  - Drug interaction [Recovered/Resolved]

NARRATIVE: CASE EVENT DATE: 20180808
